FAERS Safety Report 24018627 (Version 2)
Quarter: 2024Q3

REPORT INFORMATION
  Report Type: Other
  Country: IN (occurrence: IN)
  Receive Date: 20240627
  Receipt Date: 20240709
  Transmission Date: 20241017
  Serious: Yes (Hospitalization)
  Sender: ALVOGEN
  Company Number: IN-ALVOGEN-2024094934

PATIENT
  Age: 63 Year
  Sex: Male

DRUGS (3)
  1. MELPHALAN [Suspect]
     Active Substance: MELPHALAN
     Indication: Plasma cell myeloma
     Dosage: 140 MG/M2; 220MG?REDUCED DOSE
  2. GRANULOCYTE COLONY-STIMULATING FACTOR NOS [Concomitant]
     Active Substance: GRANULOCYTE COLONY-STIMULATING FACTOR NOS
     Indication: Product used for unknown indication
  3. PLERIXAFOR [Concomitant]
     Active Substance: PLERIXAFOR
     Indication: Product used for unknown indication
     Dosage: RENAL DOSE-ADJUSTED

REACTIONS (1)
  - Encephalopathy [Recovering/Resolving]
